FAERS Safety Report 20043381 (Version 1)
Quarter: 2021Q4

REPORT INFORMATION
  Report Type: Spontaneous
  Country: US (occurrence: US)
  Receive Date: 20211108
  Receipt Date: 20211108
  Transmission Date: 20220303
  Serious: No
  Sender: FDA-Public Use
  Company Number: US-CIPLA LTD.-2021US01157

PATIENT

DRUGS (8)
  1. GABAPENTIN [Suspect]
     Active Substance: GABAPENTIN
     Indication: Spinal stenosis
     Dosage: UNK
     Route: 065
     Dates: start: 20210124
  2. QUINAPRIL [Concomitant]
     Active Substance: QUINAPRIL
     Indication: Blood pressure abnormal
     Dosage: 10MG + 40MG/ONCE A DAY, 40 YEARS AGO
     Route: 065
  3. QUINIDINE [Concomitant]
     Active Substance: QUINIDINE
     Indication: Blood pressure abnormal
     Dosage: 0.1MG/UNK, 40 YEARS AGO
     Route: 065
  4. FAMOTIDINE [Concomitant]
     Active Substance: FAMOTIDINE
     Indication: Gastrooesophageal reflux disease
     Dosage: 20MG/UNK
     Route: 065
  5. METFORMIN [Concomitant]
     Active Substance: METFORMIN HYDROCHLORIDE
     Indication: Diabetes mellitus
     Dosage: 500 MILLIGRAM, BID
     Route: 065
  6. ATORVASTATIN [Concomitant]
     Active Substance: ATORVASTATIN
     Indication: Hypertension
     Dosage: 20 MILLIGRAM, QD
     Route: 065
  7. CREVAST [Concomitant]
     Indication: Blood cholesterol increased
     Dosage: 10MG/UNK
     Route: 065
  8. DORZOLAMIDE [Concomitant]
     Active Substance: DORZOLAMIDE
     Indication: Glaucoma
     Dosage: UNK
     Route: 065

REACTIONS (2)
  - Drug ineffective for unapproved indication [Unknown]
  - Off label use [Unknown]

NARRATIVE: CASE EVENT DATE: 20210101
